FAERS Safety Report 17283352 (Version 1)
Quarter: 2020Q1

REPORT INFORMATION
  Report Type: Spontaneous
  Country: US (occurrence: US)
  Receive Date: 20191230
  Receipt Date: 20191230
  Transmission Date: 20200409
  Serious: Yes (Hospitalization)
  Sender: FDA-Public Use
  Company Number: None

PATIENT
  Sex: Male

DRUGS (25)
  1. PREDNISONE. [Concomitant]
     Active Substance: PREDNISONE
  2. ASPIRIN. [Concomitant]
     Active Substance: ASPIRIN
  3. MONTELUKAST [Concomitant]
     Active Substance: MONTELUKAST SODIUM
  4. NEXIUM [Concomitant]
     Active Substance: ESOMEPRAZOLE MAGNESIUM
  5. NITROGLYCERN [Concomitant]
  6. ALLOPURINOL. [Concomitant]
     Active Substance: ALLOPURINOL
  7. CARVEDILOL. [Concomitant]
     Active Substance: CARVEDILOL
  8. COMBIVENT [Concomitant]
     Active Substance: ALBUTEROL SULFATE\IPRATROPIUM BROMIDE
  9. MULTI VIT/MINERALS [Concomitant]
  10. CLONIDINE. [Concomitant]
     Active Substance: CLONIDINE
  11. FISH OIL [Concomitant]
     Active Substance: FISH OIL
  12. LINZESS [Concomitant]
     Active Substance: LINACLOTIDE
  13. LISINOPRIL. [Concomitant]
     Active Substance: LISINOPRIL
  14. FUROSEMIDE. [Concomitant]
     Active Substance: FUROSEMIDE
  15. GABAPENTIN. [Concomitant]
     Active Substance: GABAPENTIN
  16. OLUMIANT [Suspect]
     Active Substance: BARICITINIB
     Indication: PSORIATIC ARTHROPATHY
     Route: 048
     Dates: start: 20190405
  17. SIMVASTATIN. [Concomitant]
     Active Substance: SIMVASTATIN
  18. SYMBICORT [Concomitant]
     Active Substance: BUDESONIDE\FORMOTEROL FUMARATE DIHYDRATE
  19. GLUCOS/CHOND [Concomitant]
  20. HYDROCO/APAP [Concomitant]
     Active Substance: ACETAMINOPHEN\HYDROCODONE
  21. KLOR-CON M10 [Concomitant]
     Active Substance: POTASSIUM CHLORIDE
  22. MORPHINE SUL [Concomitant]
     Active Substance: MORPHINE SULFATE
  23. TEMAZEPAM. [Concomitant]
     Active Substance: TEMAZEPAM
  24. DIGOXIN. [Concomitant]
     Active Substance: DIGOXIN
  25. LATANOPROST. [Concomitant]
     Active Substance: LATANOPROST

REACTIONS (1)
  - Cholecystectomy [None]
